FAERS Safety Report 5786008-2 (Version None)
Quarter: 2008Q2

REPORT INFORMATION
  Report Type: 
  Country: None (occurrence: None)
  Receive Date: 20080624
  Receipt Date: 20080623
  Transmission Date: 20081010
  Serious: Yes (Death, Hospitalization)
  Sender: FDA-Public Use
  Company Number: PHHY2008KR10355

PATIENT
  Age: 53 Year
  Sex: Male

DRUGS (1)
  1. EXJADE [Suspect]
     Dosage: 1250 MG DAILY
     Route: 048
     Dates: start: 20080227, end: 20080523

REACTIONS (4)
  - BLOOD CREATININE INCREASED [None]
  - INFECTION [None]
  - RENAL FAILURE ACUTE [None]
  - SEPSIS [None]
